FAERS Safety Report 16153682 (Version 19)
Quarter: 2022Q4

REPORT INFORMATION
  Report Type: Other
  Country: GB (occurrence: GB)
  Receive Date: 20190403
  Receipt Date: 20221104
  Transmission Date: 20230113
  Serious: Yes (Hospitalization, Disabling, Other)
  Sender: FDA-Public Use
  Company Number: US-ROCHE-2271800

PATIENT
  Age: 66 Year
  Sex: Male
  Weight: 98.972 kg

DRUGS (20)
  1. AVASTIN [Suspect]
     Active Substance: BEVACIZUMAB
     Indication: Neovascular age-related macular degeneration
     Dosage: ONE SHOTS
     Route: 065
     Dates: start: 201709
  2. AVASTIN [Suspect]
     Active Substance: BEVACIZUMAB
     Indication: Neovascular age-related macular degeneration
     Dosage: 2 SHOTS
     Route: 031
     Dates: start: 201805
  3. AVASTIN [Suspect]
     Active Substance: BEVACIZUMAB
     Indication: Neovascular age-related macular degeneration
     Route: 050
     Dates: start: 2017
  4. AVASTIN [Suspect]
     Active Substance: BEVACIZUMAB
     Indication: Choroidal neovascularisation
  5. LUCENTIS [Suspect]
     Active Substance: RANIBIZUMAB
     Indication: Neovascular age-related macular degeneration
     Dosage: UNK UNK, QD (2SHOTS)
     Route: 031
     Dates: start: 2017, end: 2017
  6. LUCENTIS [Suspect]
     Active Substance: RANIBIZUMAB
     Indication: Choroidal neovascularisation
     Dosage: UNK UNK, QD (2SHOTS)
     Route: 031
     Dates: start: 20180528, end: 20180528
  7. LUCENTIS [Suspect]
     Active Substance: RANIBIZUMAB
     Indication: Neovascular age-related macular degeneration
     Dosage: TOTAL OF 3 SHOTS OVER THE PAST 3 YEARS ONGOING: NO
     Route: 050
     Dates: start: 201806
  8. LUCENTIS [Suspect]
     Active Substance: RANIBIZUMAB
     Indication: Dry age-related macular degeneration
  9. CARBAMAZEPINE [Suspect]
     Active Substance: CARBAMAZEPINE
     Indication: Pain
     Dosage: 200 MG, BID
     Route: 048
  10. CARBAMAZEPINE [Suspect]
     Active Substance: CARBAMAZEPINE
     Dosage: 400 MG, TID
     Route: 048
     Dates: end: 20140828
  11. CARBAMAZEPINE [Suspect]
     Active Substance: CARBAMAZEPINE
     Route: 048
  12. AMITRIPTYLINE HYDROCHLORIDE [Suspect]
     Active Substance: AMITRIPTYLINE HYDROCHLORIDE
     Indication: Pain
     Dosage: 10 MG, QD (TAKEN AT NIGHT)
     Route: 048
     Dates: end: 20140828
  13. EYLEA [Suspect]
     Active Substance: AFLIBERCEPT
     Indication: Macular degeneration
     Route: 065
  14. COVID-19 VACCINE NOS [Suspect]
     Active Substance: COVID-19 VACCINE NOS
     Indication: COVID-19
     Route: 065
  15. ASPIRIN [Concomitant]
     Active Substance: ASPIRIN
     Indication: Product used for unknown indication
     Dosage: 75 MG, QD
     Route: 065
  16. ALBUTEROL [Concomitant]
     Active Substance: ALBUTEROL
     Indication: Asthma
  17. OMEPRAZOLE [Concomitant]
     Active Substance: OMEPRAZOLE
     Indication: Product used for unknown indication
     Dosage: 10 MG, QD
     Route: 065
  18. SIMVASTATIN [Concomitant]
     Active Substance: SIMVASTATIN
     Indication: Product used for unknown indication
     Dosage: 40 MG QD (TAKEN AT NIGHT)
     Route: 065
  19. PROCAINE [Concomitant]
     Active Substance: PROCAINE
  20. PROCAINE [Concomitant]
     Active Substance: PROCAINE
     Indication: Product used for unknown indication
     Route: 065

REACTIONS (45)
  - Muscular weakness [Unknown]
  - Dyspnoea [Recovered/Resolved]
  - Cystitis [Unknown]
  - Psoriasis [Unknown]
  - Dry age-related macular degeneration [Unknown]
  - Fatigue [Unknown]
  - Tremor [Unknown]
  - Cardiac failure congestive [Recovering/Resolving]
  - Muscular weakness [Unknown]
  - Pulmonary oedema [Unknown]
  - Anxiety [Unknown]
  - Slow speech [Unknown]
  - Neuralgia [Unknown]
  - Product dose omission issue [Unknown]
  - Eye haemorrhage [Recovered/Resolved]
  - Atrial fibrillation [Not Recovered/Not Resolved]
  - Lung disorder [Recovering/Resolving]
  - Skin exfoliation [Unknown]
  - Arthralgia [Unknown]
  - Blood cholesterol increased [Unknown]
  - Loss of consciousness [Unknown]
  - Eye injury [Unknown]
  - Confusional state [Recovered/Resolved]
  - Urinary tract infection [Unknown]
  - Retinal haemorrhage [Unknown]
  - Peripheral swelling [Unknown]
  - Gait inability [Unknown]
  - Blindness unilateral [Not Recovered/Not Resolved]
  - Visual impairment [Unknown]
  - Pericardial effusion [Unknown]
  - Back pain [Recovered/Resolved]
  - Eye pain [Unknown]
  - Scar [Not Recovered/Not Resolved]
  - Fall [Unknown]
  - Pulmonary thrombosis [Unknown]
  - Blindness [Not Recovered/Not Resolved]
  - Asthenia [Unknown]
  - Neovascular age-related macular degeneration [Unknown]
  - Drug ineffective [Unknown]
  - Off label use [Unknown]
  - Pneumonia [Unknown]
  - Condition aggravated [Unknown]
  - Polyuria [Unknown]
  - Agitation [Unknown]
  - Abdominal pain upper [Unknown]

NARRATIVE: CASE EVENT DATE: 20180101
